FAERS Safety Report 9959396 (Version 1)
Quarter: 2014Q1

REPORT INFORMATION
  Report Type: Report from Study
  Country: US (occurrence: US)
  Receive Date: 20140305
  Receipt Date: 20140305
  Transmission Date: 20141002
  Serious: No
  Sender: FDA-Public Use
  Company Number: US-ABBVIE-13P-163-1106734-00

PATIENT
  Age: 59 Year
  Sex: Female

DRUGS (6)
  1. HUMIRA [Suspect]
     Indication: CROHN^S DISEASE
     Dates: start: 20130109
  2. CRESTOR [Concomitant]
     Indication: BLOOD CHOLESTEROL INCREASED
  3. ATIVAN [Concomitant]
     Indication: INSOMNIA
     Dosage: 0.05 MG TAKE 2 AT BEDTIME
  4. PROZAC [Concomitant]
     Indication: DEPRESSION
     Dosage: 20 MG DAILY
  5. DOXYCYCLINE [Concomitant]
     Indication: SKIN DISORDER
     Dosage: 2 TIMES PER DAY
  6. OMEPRAZOLE [Concomitant]
     Indication: ABDOMINAL PAIN UPPER
     Dosage: 20 MG 2 TIMES PER DAY

REACTIONS (3)
  - Injection site swelling [Recovering/Resolving]
  - Injection site discolouration [Recovering/Resolving]
  - Injection site pruritus [Recovering/Resolving]
